FAERS Safety Report 21067665 (Version 3)
Quarter: 2022Q3

REPORT INFORMATION
  Report Type: Spontaneous
  Country: BR (occurrence: BR)
  Receive Date: 20220712
  Receipt Date: 20220801
  Transmission Date: 20221026
  Serious: Yes (Other)
  Sender: FDA-Public Use
  Company Number: BR-CELLTRION INC.-2022BR010851

PATIENT

DRUGS (6)
  1. HERZUMA [Suspect]
     Active Substance: TRASTUZUMAB-PKRB
     Indication: Breast cancer
     Dosage: 372 MG, WITH A CYCLE EVERY 21 DAYS
     Route: 042
     Dates: start: 202201
  2. HERZUMA [Suspect]
     Active Substance: TRASTUZUMAB-PKRB
     Dosage: PERFORMED CYCLE 7; 372 MG, WITH A CYCLE EVERY 21 DAYS
     Route: 042
     Dates: start: 20220610
  3. HERZUMA [Suspect]
     Active Substance: TRASTUZUMAB-PKRB
     Dosage: 372 MG, WITH A CYCLE EVERY 21 DAYS
     Route: 042
     Dates: start: 20220701
  4. DEXAMETHASONE [Concomitant]
     Active Substance: DEXAMETHASONE
     Indication: Premedication
  5. DECADRON [Concomitant]
     Active Substance: DEXAMETHASONE
     Indication: Premedication
  6. LORATADINE [Concomitant]
     Active Substance: LORATADINE
     Indication: Premedication

REACTIONS (7)
  - Neuropathy peripheral [Recovered/Resolved]
  - Hypersensitivity [Recovered/Resolved]
  - Hyperaemia [Recovered/Resolved]
  - Eyelid oedema [Recovered/Resolved]
  - Peripheral swelling [Recovered/Resolved]
  - Dry mouth [Recovered/Resolved]
  - Dry skin [Recovered/Resolved]

NARRATIVE: CASE EVENT DATE: 20220611
